FAERS Safety Report 13075929 (Version 1)
Quarter: 2016Q4

REPORT INFORMATION
  Report Type: Spontaneous
  Country: US (occurrence: US)
  Receive Date: 20161230
  Receipt Date: 20161230
  Transmission Date: 20170207
  Serious: No
  Sender: FDA-Public Use
  Company Number: None

PATIENT
  Age: 67 Year
  Sex: Female

DRUGS (1)
  1. LOVENOX/GENERIC [Suspect]
     Active Substance: ENOXAPARIN SODIUM

REACTIONS (3)
  - Injection site haematoma [None]
  - Product label confusion [None]
  - Abdominal wall haematoma [None]

NARRATIVE: CASE EVENT DATE: 20161127
